FAERS Safety Report 5917210-4 (Version None)
Quarter: 2008Q4

REPORT INFORMATION
  Report Type: 
  Country: None (occurrence: None)
  Receive Date: 20081014
  Receipt Date: 20081003
  Transmission Date: 20090506
  Serious: Yes (Other)
  Sender: FDA-Public Use
  Company Number: FR-CELGENEUS-056-20785-08100299

PATIENT
  Sex: Male

DRUGS (10)
  1. THALIDOMIDE [Suspect]
     Indication: MULTIPLE MYELOMA
     Route: 048
     Dates: start: 20071001
  2. THALIDOMIDE [Suspect]
     Route: 048
     Dates: start: 20080101, end: 20080101
  3. THALIDOMIDE [Suspect]
     Route: 048
     Dates: start: 20080101, end: 20080101
  4. THALIDOMIDE [Suspect]
     Route: 048
     Dates: start: 20080709
  5. MELPHALAN [Suspect]
     Indication: MULTIPLE MYELOMA
     Route: 051
     Dates: start: 20070502
  6. PREDNISONE [Suspect]
     Indication: MULTIPLE MYELOMA
     Route: 051
     Dates: start: 20070502
  7. ZOMETA [Suspect]
     Indication: MULTIPLE MYELOMA
     Route: 051
     Dates: start: 20070502
  8. SINTROM [Suspect]
     Route: 048
  9. GLUCOPHAGE [Concomitant]
     Route: 065
  10. CALCIPARINE [Concomitant]

REACTIONS (3)
  - BLISTER [None]
  - BRONCHITIS CHRONIC [None]
  - HAEMOPTYSIS [None]
